FAERS Safety Report 19770449 (Version 1)
Quarter: 2021Q3

REPORT INFORMATION
  Report Type: Spontaneous
  Country: US (occurrence: US)
  Receive Date: 20210831
  Receipt Date: 20210831
  Transmission Date: 20211014
  Serious: Yes (Other)
  Sender: FDA-Public Use
  Company Number: None

PATIENT
  Age: 64 Year
  Sex: Female

DRUGS (5)
  1. COENZYME Q10 [Concomitant]
     Active Substance: DIETARY SUPPLEMENT\UBIDECARENONE
  2. VOLTAREN [Suspect]
     Active Substance: DICLOFENAC SODIUM
     Indication: ARTHRITIS
     Dosage: ?          QUANTITY:2 GMS;?
     Route: 061
     Dates: start: 20210817, end: 20210831
  3. VITAMINS [Concomitant]
     Active Substance: VITAMINS
  4. SYNTHROID [Concomitant]
     Active Substance: LEVOTHYROXINE SODIUM
  5. ALBUTERNOL INHALER [Concomitant]

REACTIONS (8)
  - Headache [None]
  - Vision blurred [None]
  - Nausea [None]
  - Hypoaesthesia [None]
  - Peripheral swelling [None]
  - Chest pain [None]
  - Pain [None]
  - Tinnitus [None]

NARRATIVE: CASE EVENT DATE: 20210825
